FAERS Safety Report 5476615-9 (Version None)
Quarter: 2007Q4

REPORT INFORMATION
  Report Type: 
  Country: None (occurrence: None)
  Receive Date: 20071004
  Receipt Date: 20070926
  Transmission Date: 20080405
  Serious: Yes (Hospitalization)
  Sender: FDA-Public Use
  Company Number: PHMT2007CA01972

PATIENT
  Age: 51 Year
  Sex: Male

DRUGS (2)
  1. DIOVAN [Suspect]
     Dosage: 80MG
     Dates: start: 20050101, end: 20070315
  2. DIOVAN [Suspect]
     Dosage: 160MG
     Dates: start: 20070906

REACTIONS (1)
  - VASCULAR GRAFT [None]
